FAERS Safety Report 5330787-5 (Version None)
Quarter: 2007Q2

REPORT INFORMATION
  Report Type: 
  Country: None (occurrence: None)
  Receive Date: 20070522
  Receipt Date: 20070511
  Transmission Date: 20071010
  Serious: Yes (Death)
  Sender: FDA-Public Use
  Company Number: BR-JNJFOC-20070503073

PATIENT
  Age: 44 Year
  Sex: Female

DRUGS (3)
  1. HALOPERIDOL DECANOATE [Suspect]
     Indication: SCHIZOPHRENIA, PARANOID TYPE
     Dosage: GRADUALLY INCREASED FROM 1 ML/MONTH
     Route: 030
  2. DIAZEPAM [Concomitant]
     Indication: PSYCHOTIC DISORDER
     Route: 048
  3. CHLORPROMAZINE [Concomitant]
     Indication: PSYCHOTIC DISORDER
     Route: 048

REACTIONS (2)
  - DEATH [None]
  - PAIN [None]
